FAERS Safety Report 12088329 (Version 1)
Quarter: 2016Q1

REPORT INFORMATION
  Report Type: Spontaneous
  Country: US (occurrence: US)
  Receive Date: 20160218
  Receipt Date: 20160218
  Transmission Date: 20160526
  Serious: Yes (Other)
  Sender: FDA-Public Use
  Company Number: US-BEH-2016058763

PATIENT
  Sex: Female
  Weight: 69 kg

DRUGS (30)
  1. IPRATROPIUM [Concomitant]
     Active Substance: IPRATROPIUM
  2. KETOCONAZOLE. [Concomitant]
     Active Substance: KETOCONAZOLE
  3. VENTOLIN [Concomitant]
     Active Substance: ALBUTEROL SULFATE
  4. QVAR [Concomitant]
     Active Substance: BECLOMETHASONE DIPROPIONATE
  5. CLOBETASOL [Concomitant]
     Active Substance: CLOBETASOL
  6. ACIPHEX [Concomitant]
     Active Substance: RABEPRAZOLE SODIUM
  7. ONDANSETRON [Concomitant]
     Active Substance: ONDANSETRON
  8. PREDNISONE. [Concomitant]
     Active Substance: PREDNISONE
  9. SPIRIVA [Concomitant]
     Active Substance: TIOTROPIUM BROMIDE MONOHYDRATE
  10. FUROSEMIDE. [Concomitant]
     Active Substance: FUROSEMIDE
  11. VITAMIN C [Concomitant]
     Active Substance: ASCORBIC ACID
  12. ZITHROMAX [Concomitant]
     Active Substance: AZITHROMYCIN DIHYDRATE
  13. ZYRTEC [Concomitant]
     Active Substance: CETIRIZINE HYDROCHLORIDE
  14. HIZENTRA [Suspect]
     Active Substance: HUMAN IMMUNOGLOBULIN G
     Indication: HYPOGAMMAGLOBULINAEMIA
     Dosage: 4 GM 20  ML VIAL
     Route: 058
     Dates: start: 20151005
  15. MIRENA [Concomitant]
     Active Substance: LEVONORGESTREL
  16. DESONIDE. [Concomitant]
     Active Substance: DESONIDE
  17. BENZONATATE. [Concomitant]
     Active Substance: BENZONATATE
  18. RIZATRIPTAN. [Concomitant]
     Active Substance: RIZATRIPTAN
  19. ACETAMINOPHEN. [Concomitant]
     Active Substance: ACETAMINOPHEN
  20. DIPHENHYDRAMINE. [Concomitant]
     Active Substance: DIPHENHYDRAMINE
  21. CALCIUM [Concomitant]
     Active Substance: CALCIUM
  22. LIDOCAINE. [Concomitant]
     Active Substance: LIDOCAINE
  23. RABEPRAZOLE [Concomitant]
     Active Substance: RABEPRAZOLE
  24. ALBUTEROL. [Concomitant]
     Active Substance: ALBUTEROL
  25. ACARBOSE. [Concomitant]
     Active Substance: ACARBOSE
  26. DIAZEPAM. [Concomitant]
     Active Substance: DIAZEPAM
  27. ADVAIR HFA [Concomitant]
     Active Substance: FLUTICASONE PROPIONATE\SALMETEROL XINAFOATE
  28. VITAMIN D [Concomitant]
     Active Substance: CHOLECALCIFEROL
  29. NORCO [Concomitant]
     Active Substance: ACETAMINOPHEN\HYDROCODONE BITARTRATE
  30. VALTREX [Concomitant]
     Active Substance: VALACYCLOVIR HYDROCHLORIDE

REACTIONS (2)
  - Fall [Unknown]
  - Ligament rupture [Unknown]
